FAERS Safety Report 22618565 (Version 1)
Quarter: 2023Q2

REPORT INFORMATION
  Report Type: Report from Study
  Country: RU (occurrence: RU)
  Receive Date: 20230620
  Receipt Date: 20230620
  Transmission Date: 20230721
  Serious: Yes (Hospitalization, Other)
  Sender: FDA-Public Use
  Company Number: RU-PFM-2022-08520

PATIENT

DRUGS (1)
  1. PROPRANOLOL HYDROCHLORIDE [Suspect]
     Active Substance: PROPRANOLOL HYDROCHLORIDE
     Indication: Infantile haemangioma
     Dosage: UNK

REACTIONS (18)
  - Hypoglycaemia [Unknown]
  - Bronchopulmonary dysplasia [Unknown]
  - Non-compaction cardiomyopathy [Unknown]
  - Cardiac failure [Unknown]
  - Pulmonary hypertension [Unknown]
  - Syncope [Unknown]
  - Neutropenia [Unknown]
  - Chromosome analysis abnormal [Unknown]
  - Heart rate decreased [Unknown]
  - Heart rate irregular [Unknown]
  - Transaminases increased [Unknown]
  - Splenomegaly [Unknown]
  - Anaemia [Unknown]
  - Hypotension [Unknown]
  - Peripheral coldness [Unknown]
  - Product administered to patient of inappropriate age [Unknown]
  - Product use issue [Unknown]
  - Off label use [Unknown]
